FAERS Safety Report 7283150-4 (Version None)
Quarter: 2011Q1

REPORT INFORMATION
  Report Type: 
  Country: None (occurrence: None)
  Receive Date: 20110209
  Receipt Date: 20110207
  Transmission Date: 20110831
  Serious: Yes (Hospitalization)
  Sender: FDA-Public Use
  Company Number: DE-ABBOTT-10P-062-0687860-00

PATIENT
  Sex: Female
  Weight: 102 kg

DRUGS (19)
  1. EPOETIN ALFA [Concomitant]
     Dosage: 3 X 4000 IU PER WEEK
  2. CALCITRIOL [Concomitant]
     Dosage: 3 X 0.50 MCQ PER WEEK
  3. DREISAVIT [Concomitant]
     Indication: PRODUCT USED FOR UNKNOWN INDICATION
     Dosage: 1 TAB OD
     Route: 048
     Dates: start: 20100607
  4. EPOETIN ALFA [Concomitant]
     Dosage: 4000 IU PER WEEK
     Dates: start: 20100930
  5. CALCITRIOL [Concomitant]
     Indication: PRODUCT USED FOR UNKNOWN INDICATION
     Dosage: 1 MCG PER WEEK
     Route: 048
     Dates: start: 20100224, end: 20100812
  6. METOCLOPRAMID [Concomitant]
     Indication: PRODUCT USED FOR UNKNOWN INDICATION
     Dosage: 30 DROPS TID, AS NEEDED
     Route: 048
     Dates: start: 20100730
  7. SALMETEROL/FLUTICASON [Concomitant]
     Indication: PRODUCT USED FOR UNKNOWN INDICATION
     Dosage: 25MCG/50MCG PUFF TWICE DAILY
     Route: 055
     Dates: start: 20090309
  8. PHENPROCOUMON [Concomitant]
     Indication: PRODUCT USED FOR UNKNOWN INDICATION
     Route: 048
     Dates: start: 20091007
  9. PHOSPHONORM [Concomitant]
     Indication: PRODUCT USED FOR UNKNOWN INDICATION
     Dosage: 2 CAPSULES TID
     Route: 048
     Dates: start: 20090716
  10. METAMIZOL [Concomitant]
     Indication: PRODUCT USED FOR UNKNOWN INDICATION
     Route: 048
     Dates: start: 20100908
  11. LEVOTHYROXINE SODIUM [Concomitant]
     Indication: PRODUCT USED FOR UNKNOWN INDICATION
     Route: 048
  12. GABAPENTIN [Concomitant]
     Indication: PRODUCT USED FOR UNKNOWN INDICATION
     Route: 048
     Dates: start: 20100908, end: 20101011
  13. SEVELAMER [Concomitant]
     Indication: PRODUCT USED FOR UNKNOWN INDICATION
     Dosage: 1600MG TID
     Route: 048
     Dates: start: 20090617
  14. COLECALCIFEROL [Concomitant]
     Indication: PRODUCT USED FOR UNKNOWN INDICATION
     Dosage: 20000 IT PER WEEK
     Route: 048
     Dates: start: 20070418
  15. PANTOPRAZOL [Concomitant]
     Indication: PRODUCT USED FOR UNKNOWN INDICATION
     Dosage: 40 MG BID
     Route: 048
     Dates: start: 20100507
  16. EPOETIN ALFA [Concomitant]
     Indication: PRODUCT USED FOR UNKNOWN INDICATION
     Dosage: 12000 IU PER WEEK
     Route: 042
     Dates: start: 20090919, end: 20100930
  17. FERRLECIT [Concomitant]
     Indication: PRODUCT USED FOR UNKNOWN INDICATION
     Dosage: 3 X 40MG PER WEEK
     Route: 042
  18. VIANI MITE [Concomitant]
     Indication: PRODUCT USED FOR UNKNOWN INDICATION
     Dosage: 1 PUFF BID
  19. ZEMPLAR [Suspect]
     Indication: HYPERPARATHYROIDISM SECONDARY
     Dosage: 5 MCG PER WEEK
     Route: 042
     Dates: start: 20100812

REACTIONS (1)
  - HOSPITALISATION [None]
